FAERS Safety Report 7286834-7 (Version None)
Quarter: 2011Q1

REPORT INFORMATION
  Report Type: 
  Country: None (occurrence: None)
  Receive Date: 20110210
  Receipt Date: 20101206
  Transmission Date: 20110831
  Serious: Yes (Other)
  Sender: FDA-Public Use
  Company Number: US-BAYER-201038881NA

PATIENT
  Sex: Female

DRUGS (7)
  1. RESCRIPTOR [Concomitant]
  2. METOPROLOL [Concomitant]
  3. FUROSEMIDE [Concomitant]
  4. FLECAINIDE [Concomitant]
  5. AVELOX [Suspect]
     Indication: SINUSITIS
     Dosage: DAILY DOSE 400 MG
     Route: 048
     Dates: start: 20101016
  6. ISENTRESS [Concomitant]
  7. CLONIDINE [Concomitant]

REACTIONS (9)
  - DIZZINESS [None]
  - DIZZINESS POSTURAL [None]
  - ASTHENIA [None]
  - NERVOUSNESS [None]
  - FEELING COLD [None]
  - VISION BLURRED [None]
  - DRUG HYPERSENSITIVITY [None]
  - PERIPHERAL COLDNESS [None]
  - DISORIENTATION [None]
